FAERS Safety Report 7725224-7 (Version None)
Quarter: 2011Q3

REPORT INFORMATION
  Report Type: 
  Country: None (occurrence: None)
  Receive Date: 20110901
  Receipt Date: 20110823
  Transmission Date: 20111222
  Serious: Yes (Hospitalization, Other)
  Sender: FDA-Public Use
  Company Number: US-BAXTER-2011BH027069

PATIENT
  Age: 7 Year
  Sex: Male

DRUGS (3)
  1. ADVATE [Suspect]
     Indication: HAEMORRHAGE PROPHYLAXIS
     Route: 040
     Dates: start: 20110817, end: 20110817
  2. ADVATE [Suspect]
     Route: 040
     Dates: start: 20110101, end: 20110101
  3. ADVATE [Suspect]
     Route: 042
     Dates: start: 20110817

REACTIONS (3)
  - POST PROCEDURAL HAEMORRHAGE [None]
  - DRUG INEFFECTIVE [None]
  - COAGULATION FACTOR VIII LEVEL DECREASED [None]
